FAERS Safety Report 24548200 (Version 5)
Quarter: 2025Q3

REPORT INFORMATION
  Report Type: Spontaneous
  Country: EU (occurrence: EU)
  Receive Date: 20241025
  Receipt Date: 20250818
  Transmission Date: 20251021
  Serious: Yes (Hospitalization, Other)
  Sender: ALEXION PHARMACEUTICALS
  Company Number: EU-AstraZeneca-CH-00728703A

PATIENT
  Age: 54 Year
  Sex: Male

DRUGS (6)
  1. OLAPARIB [Suspect]
     Active Substance: OLAPARIB
     Dosage: 300 MILLIGRAM, BID; 2-0-2
     Route: 065
     Dates: start: 20230602
  2. OLAPARIB [Suspect]
     Active Substance: OLAPARIB
     Route: 065
  3. OLAPARIB [Suspect]
     Active Substance: OLAPARIB
     Route: 065
  4. OLAPARIB [Suspect]
     Active Substance: OLAPARIB
     Route: 065
  5. ABIRATERONE [Concomitant]
     Active Substance: ABIRATERONE
     Indication: Prostate cancer metastatic
     Dosage: 1000 MILLIGRAM, QD
     Route: 065
     Dates: start: 202306
  6. PREDNISONE [Concomitant]
     Active Substance: PREDNISONE
     Indication: Prostate cancer metastatic
     Dosage: 5 MILLIGRAM, QD
     Route: 065
     Dates: start: 202306

REACTIONS (4)
  - Haematotoxicity [Recovered/Resolved]
  - Anaemia [Recovered/Resolved]
  - Nausea [Recovered/Resolved]
  - Fatigue [Recovered/Resolved]

NARRATIVE: CASE EVENT DATE: 20230606
